FAERS Safety Report 18217769 (Version 2)
Quarter: 2020Q3

REPORT INFORMATION
  Report Type: Report from Study
  Country: HU (occurrence: HU)
  Receive Date: 20200901
  Receipt Date: 20200921
  Transmission Date: 20201103
  Serious: Yes (Other)
  Sender: FDA-Public Use
  Company Number: HU-JNJFOC-20200834034

PATIENT
  Age: 75 Year
  Sex: Male
  Weight: 70 kg

DRUGS (4)
  1. STELARA [Suspect]
     Active Substance: USTEKINUMAB
     Indication: PSORIASIS
     Route: 058
     Dates: start: 20200723
  2. DIAPREL [Concomitant]
     Active Substance: GLICLAZIDE
     Indication: DIABETES MELLITUS
     Route: 048
     Dates: start: 2016
  3. MERCKFORMIN [Concomitant]
     Active Substance: METFORMIN HYDROCHLORIDE
     Indication: DIABETES MELLITUS
     Route: 048
     Dates: start: 2016
  4. TRITACE [Concomitant]
     Active Substance: RAMIPRIL
     Indication: HYPERTENSION
     Route: 048

REACTIONS (2)
  - Nausea [Recovered/Resolved]
  - Dizziness [Recovering/Resolving]

NARRATIVE: CASE EVENT DATE: 202007
